FAERS Safety Report 6162170-7 (Version None)
Quarter: 2009Q2

REPORT INFORMATION
  Report Type: 
  Country: None (occurrence: None)
  Receive Date: 20090421
  Receipt Date: 20090416
  Transmission Date: 20091009
  Serious: Yes (Disabling, Other)
  Sender: FDA-Public Use
  Company Number: US-ALLERGAN-0905258US

PATIENT
  Sex: Female

DRUGS (2)
  1. RESTASIS [Suspect]
     Indication: DRY EYE
     Dosage: 1 GTT, Q12H
     Route: 047
     Dates: start: 20081201, end: 20090416
  2. MULTI-VITAMIN [Concomitant]

REACTIONS (4)
  - DECREASED ACTIVITY [None]
  - PAIN IN EXTREMITY [None]
  - SKIN BURNING SENSATION [None]
  - WEIGHT INCREASED [None]
